FAERS Safety Report 4428915-9 (Version None)
Quarter: 2004Q3

REPORT INFORMATION
  Report Type: 
  Country: None (occurrence: None)
  Receive Date: 20040816
  Receipt Date: 20040730
  Transmission Date: 20050211
  Serious: No
  Sender: FDA-Public Use
  Company Number: 03P-163-0230826-00

PATIENT
  Age: 44 Year
  Sex: Female
  Weight: 90.7194 kg

DRUGS (14)
  1. HUMIRA [Suspect]
     Indication: RHEUMATOID ARTHRITIS
     Dosage: 40 MG, 1 IN 2 WK, SUBCUTANEOUS
     Route: 058
     Dates: start: 20030601
  2. NAPROXEN [Concomitant]
  3. AZATHIOPRINE [Concomitant]
  4. VENLAFAXINE HCL [Concomitant]
  5. LANSOPRAZOLE [Concomitant]
  6. DYAZIDE [Concomitant]
  7. PREDNISONE [Concomitant]
  8. POTASSIUM CHLORIDE [Concomitant]
  9. ROSIGLITAZONE MALEATE [Concomitant]
  10. LEVOTHYROXINE SODIUM [Concomitant]
  11. ALPRAZOLAM [Concomitant]
  12. MULTI-VITAMINS [Concomitant]
  13. CALCIUM CARBONATE [Concomitant]
  14. DYAZIDE [Concomitant]

REACTIONS (10)
  - ALANINE AMINOTRANSFERASE INCREASED [None]
  - HAEMATOCRIT DECREASED [None]
  - INTERVERTEBRAL DISC PROTRUSION [None]
  - MENORRHAGIA [None]
  - PLATELET COUNT DECREASED [None]
  - PROTEIN TOTAL INCREASED [None]
  - RASH GENERALISED [None]
  - RED BLOOD CELL COUNT DECREASED [None]
  - RIB FRACTURE [None]
  - THROMBOSIS [None]
